FAERS Safety Report 14992855 (Version 1)
Quarter: 2018Q2

REPORT INFORMATION
  Report Type: Spontaneous
  Country: US (occurrence: US)
  Receive Date: 20180609
  Receipt Date: 20180609
  Transmission Date: 20180711
  Serious: No
  Sender: FDA-Public Use
  Company Number: US-009507513-1806USA001822

PATIENT
  Sex: Female
  Weight: 62.59 kg

DRUGS (1)
  1. NEXPLANON [Suspect]
     Active Substance: ETONOGESTREL
     Indication: CONTRACEPTION
     Dosage: 1 DF, 4 YEAR IMPLANT, LEFT ARM
     Route: 059
     Dates: start: 20170101

REACTIONS (5)
  - Menstruation irregular [Not Recovered/Not Resolved]
  - Drug prescribing error [Unknown]
  - Hypomenorrhoea [Not Recovered/Not Resolved]
  - Menorrhagia [Not Recovered/Not Resolved]
  - Circumstance or information capable of leading to medication error [Unknown]
